FAERS Safety Report 4906887-8 (Version None)
Quarter: 2006Q1

REPORT INFORMATION
  Report Type: 
  Country: None (occurrence: None)
  Receive Date: 20060207
  Receipt Date: 20060117
  Transmission Date: 20060701
  Serious: Yes (Other)
  Sender: FDA-Public Use
  Company Number: CA200601003248

PATIENT
  Age: 59 Year
  Sex: Female

DRUGS (8)
  1. FORTEO [Suspect]
     Indication: OSTEOPOROSIS
     Dosage: 20 UG, DAILY (1/D)
     Dates: start: 20060103
  2. FORTEO PEN (FORTEO PEN) [Concomitant]
  3. PROPRANOLOL HYDROCHLORIDE [Concomitant]
  4. LIPITOR [Concomitant]
  5. SYNTHROID [Concomitant]
  6. AMLODIPONE BESILATE (AMLODIPINE BESILATE) [Concomitant]
  7. CALCIUM (CALCIUM) [Concomitant]
  8. VITAMIN D NOS (VITAMIN D NOS) [Concomitant]

REACTIONS (3)
  - HYPERCALCAEMIA [None]
  - LOWER EXTREMITY MASS [None]
  - THROMBOPHLEBITIS SUPERFICIAL [None]
